FAERS Safety Report 17554942 (Version 5)
Quarter: 2024Q2

REPORT INFORMATION
  Report Type: Spontaneous
  Country: US (occurrence: US)
  Receive Date: 20200318
  Receipt Date: 20240401
  Transmission Date: 20240716
  Serious: Yes (Other)
  Sender: FDA-Public Use
  Company Number: US-PFIZER INC-2020117040

PATIENT
  Age: 62 Year
  Sex: Female

DRUGS (1)
  1. XELJANZ [Suspect]
     Active Substance: TOFACITINIB CITRATE
     Dosage: 10 MG

REACTIONS (7)
  - Dyspnoea [Unknown]
  - Depressed mood [Unknown]
  - Fear [Unknown]
  - Stress [Unknown]
  - Psychiatric symptom [Unknown]
  - Cognitive disorder [Unknown]
  - Frustration tolerance decreased [Unknown]
